FAERS Safety Report 4313378-4 (Version None)
Quarter: 2004Q1

REPORT INFORMATION
  Report Type: 
  Country: None (occurrence: None)
  Receive Date: 20040304
  Receipt Date: 20040217
  Transmission Date: 20041129
  Serious: Yes (Death, Hospitalization, Disabling, Other)
  Sender: FDA-Public Use
  Company Number: USA040259605

PATIENT
  Sex: Male

DRUGS (2)
  1. HUMULIN N [Suspect]
     Indication: DIABETES MELLITUS INSULIN-DEPENDENT
  2. HUMULIN R [Suspect]
     Indication: DIABETES MELLITUS INSULIN-DEPENDENT

REACTIONS (7)
  - ANGIOPATHY [None]
  - ARTERIAL OCCLUSIVE DISEASE [None]
  - CAROTID ENDARTERECTOMY [None]
  - DIABETIC COMPLICATION [None]
  - EYE DISORDER [None]
  - SCIATICA [None]
  - TOE AMPUTATION [None]
